FAERS Safety Report 6720058-4 (Version None)
Quarter: 2010Q2

REPORT INFORMATION
  Report Type: 
  Country: None (occurrence: None)
  Receive Date: 20100507
  Receipt Date: 20100428
  Transmission Date: 20101027
  Serious: Yes (Other)
  Sender: FDA-Public Use
  Company Number: 2010EU001517

PATIENT
  Sex: Female
  Weight: 51 kg

DRUGS (3)
  1. SOLIFENACIN SUCCINATE (VESICARE) [Suspect]
     Indication: HYPERTONIC BLADDER
     Dosage: 5 MG, /D, ORAL
     Route: 048
     Dates: start: 20100113, end: 20100225
  2. SOTALOL HCL [Concomitant]
  3. LEVOTHYROXINE SODIUM [Concomitant]

REACTIONS (3)
  - ABDOMINAL PAIN [None]
  - CARDIOVASCULAR INSUFFICIENCY [None]
  - TACHYCARDIA [None]
